FAERS Safety Report 7631791-4 (Version None)
Quarter: 2011Q3

REPORT INFORMATION
  Report Type: 
  Country: None (occurrence: None)
  Receive Date: 20110725
  Receipt Date: 20110322
  Transmission Date: 20111222
  Serious: Yes (Hospitalization)
  Sender: FDA-Public Use
  Company Number: US-BRISTOL-MYERS SQUIBB COMPANY-15625452

PATIENT
  Age: 82 Year
  Sex: Female
  Weight: 82 kg

DRUGS (5)
  1. VITAMIN TAB [Suspect]
  2. IBUPROFEN (ADVIL) [Interacting]
     Indication: NECK PAIN
     Dosage: 200MG TABLET
     Route: 048
     Dates: start: 20110129, end: 20110129
  3. FOLIC ACID [Concomitant]
  4. HYDROCHLOROTHIAZIDE [Concomitant]
  5. COUMADIN [Interacting]
     Indication: COAGULOPATHY
     Route: 048
     Dates: start: 20000101, end: 20110201

REACTIONS (3)
  - DRUG INTERACTION [None]
  - HAEMORRHAGE [None]
  - NECK PAIN [None]
